FAERS Safety Report 13345015 (Version 1)
Quarter: 2017Q1

REPORT INFORMATION
  Report Type: Spontaneous
  Country: US (occurrence: US)
  Receive Date: 20170316
  Receipt Date: 20170316
  Transmission Date: 20170428
  Serious: Yes (Other)
  Sender: FDA-Public Use
  Company Number: None

PATIENT
  Age: 65 Year
  Sex: Male
  Weight: 109.8 kg

DRUGS (5)
  1. TROSPIUM [Suspect]
     Active Substance: TROSPIUM
     Indication: POLLAKIURIA
     Route: 048
     Dates: start: 20170127, end: 20170127
  2. CATHETER [Concomitant]
     Active Substance: DEVICE
  3. TERAZOSIN [Concomitant]
     Active Substance: TERAZOSIN\TERAZOSIN HYDROCHLORIDE
  4. NORTRIPTYLIN [Concomitant]
     Active Substance: NORTRIPTYLINE
  5. FINASTERIDE. [Concomitant]
     Active Substance: FINASTERIDE

REACTIONS (2)
  - Muscle tightness [None]
  - Middle insomnia [None]

NARRATIVE: CASE EVENT DATE: 20170129
